FAERS Safety Report 5401540-9 (Version None)
Quarter: 2007Q3

REPORT INFORMATION
  Report Type: 
  Country: None (occurrence: None)
  Receive Date: 20070731
  Receipt Date: 20070720
  Transmission Date: 20080115
  Serious: Yes (Other)
  Sender: FDA-Public Use
  Company Number: GB-ROCHE-508921

PATIENT
  Age: 34 Year
  Sex: Female
  Weight: 125.6 kg

DRUGS (1)
  1. XENICAL [Suspect]
     Indication: OBESITY
     Route: 048
     Dates: start: 20070622, end: 20070711

REACTIONS (2)
  - CHEST PAIN [None]
  - PALPITATIONS [None]
